FAERS Safety Report 7756860-X (Version None)
Quarter: 2011Q3

REPORT INFORMATION
  Report Type: 
  Country: None (occurrence: None)
  Receive Date: 20110916
  Receipt Date: 20110912
  Transmission Date: 20111222
  Serious: No
  Sender: FDA-Public Use
  Company Number: US-BAYER-2011-085313

PATIENT
  Age: 46 Year
  Sex: Female

DRUGS (1)
  1. BETASERON [Suspect]
     Indication: RELAPSING-REMITTING MULTIPLE SCLEROSIS
     Dosage: 0.05 ML, QOD
     Dates: start: 20110818

REACTIONS (4)
  - HEADACHE [None]
  - INJECTION SITE PAIN [None]
  - INSOMNIA [None]
  - FATIGUE [None]
